FAERS Safety Report 26069861 (Version 1)
Quarter: 2025Q4

REPORT INFORMATION
  Report Type: Spontaneous
  Country: US (occurrence: None)
  Receive Date: 20251119
  Receipt Date: 20251119
  Transmission Date: 20260118
  Serious: Yes (Disabling)
  Sender: FDA-CTU
  Company Number: None

PATIENT
  Age: 37 Year
  Sex: Female
  Weight: 56.25 kg

DRUGS (4)
  1. AMPHETAMINE ASPARTATE\DEXTROAMPHETAMINE SACCHARATE [Suspect]
     Active Substance: AMPHETAMINE ASPARTATE\DEXTROAMPHETAMINE SACCHARATE
     Indication: Attention deficit hyperactivity disorder
     Dosage: OTHER QUANTITY : 1 CAPSULE(S);?
     Route: 048
  2. 1mg melatonin [Concomitant]
  3. ADDERALL [Concomitant]
     Active Substance: AMPHETAMINE ASPARTATE\AMPHETAMINE SULFATE\DEXTROAMPHETAMINE SACCHARATE\DEXTROAMPHETAMINE SULFATE
  4. MIRENA [Concomitant]
     Active Substance: LEVONORGESTREL

REACTIONS (1)
  - Heart rate increased [None]

NARRATIVE: CASE EVENT DATE: 20251017
